FAERS Safety Report 6617716-9 (Version None)
Quarter: 2010Q1

REPORT INFORMATION
  Report Type: 
  Country: None (occurrence: None)
  Receive Date: 20100308
  Receipt Date: 20100222
  Transmission Date: 20100710
  Serious: Yes (Other)
  Sender: FDA-Public Use
  Company Number: PHHY2010JP04507

PATIENT
  Sex: Male
  Weight: 3.08 kg

DRUGS (3)
  1. TEGRETOL [Suspect]
     Route: 064
  2. FERROMIA [Concomitant]
     Route: 064
  3. FOLIAMIN [Concomitant]
     Route: 064

REACTIONS (5)
  - DRUG EXPOSURE DURING PREGNANCY [None]
  - DRUG EXPOSURE VIA BREAST MILK [None]
  - EYE MOVEMENT DISORDER [None]
  - RETINAL HAEMORRHAGE [None]
  - WITHDRAWAL SYNDROME [None]
